FAERS Safety Report 8576922-7 (Version None)
Quarter: 2012Q3

REPORT INFORMATION
  Report Type: 
  Country: None (occurrence: None)
  Receive Date: 20120807
  Receipt Date: 20120731
  Transmission Date: 20120928
  Serious: Yes (Other)
  Sender: FDA-Public Use
  Company Number: PHHY2012BR067414

PATIENT
  Sex: Female
  Weight: 82 kg

DRUGS (5)
  1. SIMVASTATIN [Concomitant]
     Indication: BLOOD CHOLESTEROL INCREASED
     Dosage: 1 DF, QD
     Route: 048
  2. DIOVAN [Suspect]
     Indication: HYPERTENSION
     Dosage: 1 DF, QD
     Route: 048
  3. INFLUENZA VACCINE [Suspect]
     Dosage: UNK UKN, UNK
  4. DICLOFENAC SODIUM [Suspect]
     Indication: PAIN
     Dosage: 1 DF, Q12H
     Route: 048
     Dates: end: 20120727
  5. ASPIRIN [Concomitant]
     Dosage: 1 DF, QD
     Route: 048

REACTIONS (9)
  - COUGH [None]
  - SALIVARY HYPERSECRETION [None]
  - NASOPHARYNGITIS [None]
  - MUSCULOSKELETAL PAIN [None]
  - NAUSEA [None]
  - MALAISE [None]
  - VOMITING [None]
  - HYPOTENSION [None]
  - DYSPHONIA [None]
